FAERS Safety Report 9541830 (Version 3)
Quarter: 2013Q4

REPORT INFORMATION
  Report Type: Report from Study
  Country: CA (occurrence: CA)
  Receive Date: 20130923
  Receipt Date: 20131025
  Transmission Date: 20140711
  Serious: Yes (Hospitalization, Other)
  Sender: FDA-Public Use
  Company Number: PHHY2013CA098278

PATIENT
  Age: 44 Year
  Sex: Female

DRUGS (6)
  1. CLOZARIL [Suspect]
     Indication: SCHIZOPHRENIA
     Dosage: 125 MG, UNK
     Route: 048
     Dates: start: 20130805
  2. CLOZARIL [Suspect]
     Dosage: 900 MG, UNK
     Dates: start: 20130902, end: 20130902
  3. RIVOTRIL [Concomitant]
     Dosage: 1 MG, DAILY
  4. EPIVAL [Concomitant]
     Dosage: 1500 MG, DAILY
  5. SEROQUEL [Concomitant]
     Dosage: 200 UKN, QHS
  6. SERAX [Concomitant]
     Dosage: 30 UKN, UNK

REACTIONS (4)
  - Toxicity to various agents [Recovered/Resolved]
  - Hallucination [Recovered/Resolved]
  - Convulsion [Recovered/Resolved]
  - Delirium [Recovered/Resolved]
